FAERS Safety Report 5730160-1 (Version None)
Quarter: 2008Q2

REPORT INFORMATION
  Report Type: 
  Country: None (occurrence: None)
  Receive Date: 20080507
  Receipt Date: 20080428
  Transmission Date: 20081010
  Serious: Yes (Other)
  Sender: FDA-Public Use
  Company Number: US-WYE-H03872108

PATIENT
  Sex: Female

DRUGS (3)
  1. PREMARIN [Suspect]
  2. ESTRATEST [Suspect]
  3. ESTRACE [Suspect]

REACTIONS (2)
  - BREAST CANCER [None]
  - RENAL CELL CARCINOMA [None]
